FAERS Safety Report 9295797 (Version 1)
Quarter: 2013Q2

REPORT INFORMATION
  Report Type: Spontaneous
  Country: CH (occurrence: CH)
  Receive Date: 20130517
  Receipt Date: 20130517
  Transmission Date: 20140414
  Serious: Yes (Hospitalization)
  Sender: FDA-Public Use
  Company Number: CH-PFIZER INC-2013149215

PATIENT
  Age: 86 Year
  Sex: Male
  Weight: 57.1 kg

DRUGS (4)
  1. SORTIS [Suspect]
     Dosage: 40 MG, UNK
     Route: 048
     Dates: end: 20130326
  2. CARDIOASPIRINE [Concomitant]
     Dosage: 100 MG, DAILY
     Route: 048
  3. ATACAND [Concomitant]
     Dosage: 16 MG, DAILY
     Route: 048
  4. ARICEPT [Concomitant]
     Dosage: 5 MG, DAILY
     Route: 048

REACTIONS (7)
  - Rhabdomyolysis [Recovered/Resolved]
  - Aortic aneurysm [Unknown]
  - Thrombosis [Unknown]
  - Peripheral embolism [Unknown]
  - Peripheral arterial occlusive disease [Unknown]
  - Ischaemia [Unknown]
  - Renal failure acute [Unknown]
